FAERS Safety Report 25396630 (Version 1)
Quarter: 2025Q2

REPORT INFORMATION
  Report Type: Spontaneous
  Country: US (occurrence: None)
  Receive Date: 20250604
  Receipt Date: 20250604
  Transmission Date: 20250717
  Serious: Yes (Disabling, Other)
  Sender: FDA-CTU
  Company Number: None

PATIENT
  Age: 20 Year
  Sex: Female
  Weight: 65.25 kg

DRUGS (5)
  1. SERTRALINE [Suspect]
     Active Substance: SERTRALINE HYDROCHLORIDE
     Indication: Anxiety
     Dosage: FREQUENCY : AT BEDTIME;?
     Route: 048
     Dates: start: 20170815, end: 20220621
  2. SERTRALINE [Suspect]
     Active Substance: SERTRALINE HYDROCHLORIDE
     Indication: Panic attack
  3. IBUPROFEN [Concomitant]
     Active Substance: IBUPROFEN
  4. VITAMIN D [Concomitant]
     Active Substance: VITAMIN D NOS
  5. MAGNESIUM [Concomitant]
     Active Substance: MAGNESIUM

REACTIONS (11)
  - Weight increased [None]
  - Fluid retention [None]
  - Sexual dysfunction [None]
  - Drug withdrawal syndrome [None]
  - Postural orthostatic tachycardia syndrome [None]
  - Alopecia [None]
  - Impaired work ability [None]
  - Blood glucose abnormal [None]
  - Thyroid disorder [None]
  - Mast cell activation syndrome [None]
  - Food intolerance [None]

NARRATIVE: CASE EVENT DATE: 20220701
